FAERS Safety Report 7479254-3 (Version None)
Quarter: 2011Q2

REPORT INFORMATION
  Report Type: 
  Country: None (occurrence: None)
  Receive Date: 20110513
  Receipt Date: 20110510
  Transmission Date: 20111010
  Serious: Yes (Hospitalization)
  Sender: FDA-Public Use
  Company Number: Z0002431B

PATIENT
  Sex: Male
  Weight: 73 kg

DRUGS (2)
  1. VOTRIENT [Suspect]
     Indication: NON-SMALL CELL LUNG CANCER
     Dosage: 800MG PER DAY
     Route: 048
     Dates: start: 20091008
  2. PEMETREXED [Suspect]
     Indication: NON-SMALL CELL LUNG CANCER
     Dosage: 500MGM2 CYCLIC
     Route: 042
     Dates: start: 20091008

REACTIONS (1)
  - PANCYTOPENIA [None]
